FAERS Safety Report 24880726 (Version 2)
Quarter: 2025Q1

REPORT INFORMATION
  Report Type: Report from Study
  Country: CO (occurrence: CO)
  Receive Date: 20250123
  Receipt Date: 20250220
  Transmission Date: 20250409
  Serious: Yes (Hospitalization, Other)
  Sender: ALEXION PHARMACEUTICALS
  Company Number: CO-AstraZeneca-CH-00788905A

PATIENT
  Age: 44 Year

DRUGS (1)
  1. SODIUM ZIRCONIUM CYCLOSILICATE [Suspect]
     Active Substance: SODIUM ZIRCONIUM CYCLOSILICATE
     Indication: Hyperkalaemia

REACTIONS (6)
  - Infection [Unknown]
  - Chills [Unknown]
  - Diarrhoea [Unknown]
  - Cholecystitis [Unknown]
  - Vomiting [Unknown]
  - Pyrexia [Unknown]
